FAERS Safety Report 10748967 (Version 3)
Quarter: 2015Q2

REPORT INFORMATION
  Report Type: Spontaneous
  Country: US (occurrence: US)
  Receive Date: 20150129
  Receipt Date: 20150609
  Transmission Date: 20150821
  Serious: Yes (Hospitalization)
  Sender: FDA-Public Use
  Company Number: US-BAYER-2015-010253

PATIENT
  Age: 28 Year
  Sex: Female
  Weight: 71.2 kg

DRUGS (6)
  1. MIRENA [Suspect]
     Active Substance: LEVONORGESTREL
     Indication: CONTRACEPTION
     Dosage: 20 MCG/24HR, CONT
     Route: 015
     Dates: start: 20071029, end: 20121212
  2. ALEVE [Concomitant]
     Active Substance: NAPROXEN SODIUM
  3. MIRENA [Suspect]
     Active Substance: LEVONORGESTREL
     Indication: CONTRACEPTION
     Dosage: 20 MCG/24HR, CONT
     Route: 015
     Dates: start: 20121212, end: 20130613
  4. MIRENA [Suspect]
     Active Substance: LEVONORGESTREL
     Indication: CONTRACEPTION
     Dosage: 20 MCG/24HR, CONT
     Route: 015
     Dates: start: 20130730
  5. IBUPROFEN. [Concomitant]
     Active Substance: IBUPROFEN
  6. SERTRALINE [Concomitant]
     Active Substance: SERTRALINE HYDROCHLORIDE
     Dosage: 50 MG, QD
     Dates: start: 20130426

REACTIONS (11)
  - Device dislocation [None]
  - Injury [None]
  - Uterine perforation [None]
  - Genital haemorrhage [None]
  - Menorrhagia [None]
  - Dyspareunia [None]
  - Anxiety [None]
  - Vaginal haemorrhage [None]
  - Pelvic pain [None]
  - Post procedural discomfort [Recovered/Resolved]
  - Abdominal pain lower [None]

NARRATIVE: CASE EVENT DATE: 20121212
